FAERS Safety Report 18776857 (Version 1)
Quarter: 2021Q1

REPORT INFORMATION
  Report Type: Report from Study
  Country: CH (occurrence: CH)
  Receive Date: 20210122
  Receipt Date: 20210122
  Transmission Date: 20210419
  Serious: Yes (Hospitalization, Other)
  Sender: FDA-Public Use
  Company Number: CH-PFIZER INC-2021045402

PATIENT
  Age: 23 Year
  Sex: Male
  Weight: 111 kg

DRUGS (5)
  1. CYTOSAR [Suspect]
     Active Substance: CYTARABINE
     Indication: CHEMOTHERAPY
     Dosage: 4200 MG
     Route: 042
     Dates: start: 20200709, end: 20200709
  2. CYTOSAR [Suspect]
     Active Substance: CYTARABINE
     Dosage: 4200 MG
     Route: 042
     Dates: start: 20200711
  3. DEXAMETHASONE. [Concomitant]
     Active Substance: DEXAMETHASONE
     Dosage: UNK
     Dates: start: 20200709, end: 20200711
  4. NEULASTA [Concomitant]
     Active Substance: PEGFILGRASTIM
     Dosage: UNK
  5. CYTOSAR [Suspect]
     Active Substance: CYTARABINE
     Dosage: 8400 MG
     Route: 042
     Dates: start: 20200710, end: 20200710

REACTIONS (1)
  - Febrile neutropenia [Recovered/Resolved]

NARRATIVE: CASE EVENT DATE: 20200720
